FAERS Safety Report 6339700-5 (Version None)
Quarter: 2009Q3

REPORT INFORMATION
  Report Type: 
  Country: None (occurrence: None)
  Receive Date: 20090903
  Receipt Date: 20090821
  Transmission Date: 20100115
  Serious: Yes (Hospitalization)
  Sender: FDA-Public Use
  Company Number: PL-PFIZER INC-2009258469

PATIENT
  Age: 58 Year

DRUGS (4)
  1. BLINDED *NO SUBJECT DRUG [Suspect]
     Indication: PULMONARY ARTERIAL HYPERTENSION
     Dosage: UNK
     Route: 048
     Dates: start: 20090707, end: 20090820
  2. BLINDED SILDENAFIL CITRATE [Suspect]
     Indication: PULMONARY ARTERIAL HYPERTENSION
     Dosage: UNK
     Route: 048
     Dates: start: 20090707, end: 20090820
  3. BLINDED *NO SUBJECT DRUG [Suspect]
     Dosage: UNK
     Route: 048
     Dates: start: 20090820, end: 20090820
  4. BLINDED SILDENAFIL CITRATE [Suspect]
     Dosage: UNK
     Route: 048
     Dates: start: 20090820, end: 20090820

REACTIONS (2)
  - HEADACHE [None]
  - RASH [None]
